FAERS Safety Report 5841370-7 (Version None)
Quarter: 2008Q3

REPORT INFORMATION
  Report Type: 
  Country: None (occurrence: None)
  Receive Date: 20080812
  Receipt Date: 20080806
  Transmission Date: 20090109
  Serious: Yes (Disabling, Other)
  Sender: FDA-Public Use
  Company Number: BR-BAYER-200816830LA

PATIENT
  Age: 35 Year
  Sex: Female
  Weight: 70 kg

DRUGS (1)
  1. YAZ [Suspect]
     Indication: CONTRACEPTION
     Route: 048
     Dates: start: 20080401, end: 20080706

REACTIONS (10)
  - ASTHENIA [None]
  - BREAST SWELLING [None]
  - CHEST PAIN [None]
  - DEAFNESS [None]
  - DIZZINESS [None]
  - HYPOAESTHESIA [None]
  - MENORRHAGIA [None]
  - MENSTRUATION DELAYED [None]
  - PAIN IN EXTREMITY [None]
  - PNEUMONIA [None]
